FAERS Safety Report 12061991 (Version 1)
Quarter: 2016Q1

REPORT INFORMATION
  Report Type: Report from Study
  Country: US (occurrence: US)
  Receive Date: 20160210
  Receipt Date: 20160210
  Transmission Date: 20160526
  Serious: Yes (Hospitalization, Other)
  Sender: FDA-Public Use
  Company Number: US-ABBVIE-16K-163-1553804-00

PATIENT
  Sex: Female

DRUGS (1)
  1. HUMIRA [Suspect]
     Active Substance: ADALIMUMAB
     Indication: CROHN^S DISEASE
     Route: 058
     Dates: start: 20151001, end: 20151231

REACTIONS (4)
  - Colonic fistula [Recovered/Resolved]
  - Urinary tract infection [Not Recovered/Not Resolved]
  - Escherichia infection [Recovering/Resolving]
  - Enterococcal infection [Recovering/Resolving]
